FAERS Safety Report 7415686-7 (Version None)
Quarter: 2011Q2

REPORT INFORMATION
  Report Type: 
  Country: None (occurrence: None)
  Receive Date: 20110414
  Receipt Date: 20110407
  Transmission Date: 20111010
  Serious: Yes (Hospitalization)
  Sender: FDA-Public Use
  Company Number: FR-MERCK-1101FRA00008

PATIENT
  Age: 53 Year
  Sex: Female

DRUGS (12)
  1. NOREPINEPHRINE [Concomitant]
     Route: 065
  2. SUFENTANIL CITRATE [Concomitant]
     Route: 065
  3. AMIKACIN SULFATE [Suspect]
     Route: 065
     Dates: start: 20101126, end: 20101129
  4. CIPROFLOXACIN HYDROCHLORIDE [Concomitant]
     Route: 042
     Dates: start: 20101127, end: 20101205
  5. PIPERACILLIN SODIUM AND TAZOBACTAM SODIUM [Suspect]
     Route: 042
     Dates: start: 20101126, end: 20101205
  6. FUROSEMIDE [Concomitant]
     Route: 065
  7. ENOXAPARIN SODIUM [Concomitant]
     Route: 065
  8. CIPROFLOXACIN HYDROCHLORIDE [Concomitant]
     Route: 065
     Dates: start: 20101207, end: 20101216
  9. PRIMAXIN [Suspect]
     Route: 042
     Dates: start: 20101205, end: 20101207
  10. HYDROCORTISONE HEMISUCCINATE [Concomitant]
     Route: 065
  11. MIDAZOLAM [Concomitant]
     Route: 065
  12. TICARCILLIN DISODIUM AND CLAVULANATE POTASSIUM [Concomitant]
     Route: 042
     Dates: start: 20101207, end: 20101209

REACTIONS (4)
  - RASH MACULO-PAPULAR [None]
  - ERYTHEMA [None]
  - PUSTULAR PSORIASIS [None]
  - DERMATITIS BULLOUS [None]
